FAERS Safety Report 17408584 (Version 3)
Quarter: 2020Q1

REPORT INFORMATION
  Report Type: Other
  Country: BE (occurrence: GB)
  Receive Date: 20200212
  Receipt Date: 20200320
  Transmission Date: 20200409
  Serious: Yes (Other)
  Sender: FDA-Public Use
  Company Number: GB-RECORDATI RARE DISEASES-2080186

PATIENT
  Age: 24 Month
  Sex: Male

DRUGS (2)
  1. PYRIDOXINE [Concomitant]
     Active Substance: PYRIDOXINE
  2. CYSTADANE [Suspect]
     Active Substance: BETAINE
     Indication: HOMOCYSTINURIA

REACTIONS (6)
  - Hypermethioninaemia [Recovered/Resolved]
  - White matter lesion [Recovered/Resolved]
  - Intracranial pressure increased [Recovered/Resolved]
  - Headache [Recovered/Resolved]
  - Vomiting [Recovered/Resolved]
  - Brain oedema [Recovered/Resolved]
